FAERS Safety Report 10522788 (Version 1)
Quarter: 2014Q4

REPORT INFORMATION
  Report Type: Spontaneous
  Country: TR (occurrence: None)
  Receive Date: 20141014
  Receipt Date: 20141014
  Transmission Date: 20150528
  Serious: Yes (Other)
  Sender: FDA-Public Use
  Company Number: TR-AIKEM-000737

PATIENT

DRUGS (1)
  1. AMLODIPINE [Suspect]
     Active Substance: AMLODIPINE BESYLATE
     Indication: PRODUCT USED FOR UNKNOWN INDICATION
     Dosage: 10.0000000000-MG -1.00D, ORAL
     Route: 048

REACTIONS (4)
  - Alanine aminotransferase increased [None]
  - Drug-induced liver injury [None]
  - Blood bilirubin increased [None]
  - Aspartate aminotransferase increased [None]
